FAERS Safety Report 6132722-9 (Version None)
Quarter: 2009Q1

REPORT INFORMATION
  Report Type: 
  Country: None (occurrence: None)
  Receive Date: 20090325
  Receipt Date: 20090325
  Transmission Date: 20090719
  Serious: Yes (Other)
  Sender: FDA-Public Use
  Company Number: None

PATIENT
  Sex: Male

DRUGS (1)
  1. METFORMIN HCL [Suspect]
     Indication: DIABETES MELLITUS
     Dosage: ONE TAB 3 X DAILY BY MOUTH
     Route: 048
     Dates: start: 20060901, end: 20061001

REACTIONS (1)
  - DIARRHOEA [None]
